FAERS Safety Report 17818292 (Version 1)
Quarter: 2020Q2

REPORT INFORMATION
  Report Type: Spontaneous
  Country: US (occurrence: US)
  Receive Date: 20200522
  Receipt Date: 20200522
  Transmission Date: 20200714
  Serious: No
  Sender: FDA-Public Use
  Company Number: US-BAUSCH-BL-2020-014465

PATIENT
  Age: 75 Year
  Sex: Female

DRUGS (3)
  1. MYSOLINE [Suspect]
     Active Substance: PRIMIDONE
     Indication: OFF LABEL USE
     Dosage: FOR 3 TO 4 YEARS
     Route: 048
  2. MYSOLINE [Suspect]
     Active Substance: PRIMIDONE
     Dosage: ONE-HALF TABLET BY MOUTH 4 TIMES DAILY
     Route: 048
  3. MYSOLINE [Suspect]
     Active Substance: PRIMIDONE
     Indication: TREMOR
     Dosage: MANY YEARS AGO
     Route: 048

REACTIONS (8)
  - Visual impairment [Unknown]
  - Balance disorder [Unknown]
  - Aphasia [Unknown]
  - Symptom recurrence [Unknown]
  - Therapy change [Unknown]
  - Gait disturbance [Unknown]
  - Loss of personal independence in daily activities [Unknown]
  - Off label use [Unknown]

NARRATIVE: CASE EVENT DATE: 2019
